FAERS Safety Report 15715379 (Version 1)
Quarter: 2018Q4

REPORT INFORMATION
  Report Type: Spontaneous
  Country: TR (occurrence: TR)
  Receive Date: 20181212
  Receipt Date: 20181212
  Transmission Date: 20190205
  Serious: Yes (Hospitalization, Other)
  Sender: FDA-Public Use
  Company Number: TR-MYLANLABS-2018M1091032

PATIENT
  Age: 67 Year
  Sex: Male

DRUGS (4)
  1. DACARBAZINE. [Suspect]
     Active Substance: DACARBAZINE
     Indication: METASTASES TO LUNG
     Dosage: UNK
  2. CALCITONIN SALMON. [Suspect]
     Active Substance: CALCITONIN SALMON
     Indication: PARATHYROID TUMOUR BENIGN
     Dosage: UNK
  3. ZOLEDRONIC ACID [Suspect]
     Active Substance: ZOLEDRONIC ACID
     Indication: PARATHYROID TUMOUR BENIGN
     Dosage: UNK UNK, 2X, TWO TIMES
     Route: 065
  4. FUROSEMIDE. [Suspect]
     Active Substance: FUROSEMIDE
     Indication: PARATHYROID TUMOUR BENIGN
     Dosage: UNK
     Route: 065

REACTIONS (3)
  - Parathyroid tumour benign [Unknown]
  - Metastases to lung [Unknown]
  - Malignant neoplasm progression [Unknown]
